FAERS Safety Report 9638017 (Version 1)
Quarter: 2013Q4

REPORT INFORMATION
  Report Type: Report from Study
  Country: DE (occurrence: DE)
  Receive Date: 20131022
  Receipt Date: 20131022
  Transmission Date: 20140711
  Serious: Yes (Other)
  Sender: FDA-Public Use
  Company Number: PHHY2013DE115410

PATIENT
  Sex: Female
  Weight: 69 kg

DRUGS (5)
  1. AFINITOR [Suspect]
     Indication: BREAST CANCER METASTATIC
     Dosage: 10 MG, DAILY
     Route: 048
     Dates: start: 20130412, end: 20130604
  2. AFINITOR [Suspect]
     Dosage: 10 MG, DAILY
     Route: 048
     Dates: start: 20130606
  3. EXEMESTANE [Suspect]
     Indication: BREAST CANCER METASTATIC
     Dosage: 25 MG, DAILY
     Route: 048
     Dates: start: 20130412, end: 20130604
  4. EXEMESTANE [Suspect]
     Dosage: 25 MG, DAILY
     Route: 048
     Dates: start: 20130606
  5. BONDRONAT//IBANDRONATE SODIUM [Concomitant]
     Indication: METASTASES TO BONE
     Dosage: 6 MG, QMO
     Route: 042
     Dates: start: 20120530

REACTIONS (2)
  - Leukopenia [Recovering/Resolving]
  - Lymphopenia [Not Recovered/Not Resolved]
